FAERS Safety Report 9656554 (Version 7)
Quarter: 2014Q3

REPORT INFORMATION
  Report Type: Spontaneous
  Country: JP (occurrence: JP)
  Receive Date: 20131030
  Receipt Date: 20140929
  Transmission Date: 20150326
  Serious: Yes (Hospitalization)
  Sender: FDA-Public Use
  Company Number: PHHY2012JP057147

PATIENT
  Age: 35 Year
  Sex: Female
  Weight: 63 kg

DRUGS (51)
  1. CLOZARIL [Suspect]
     Active Substance: CLOZAPINE
     Indication: SCHIZOPHRENIA, PARANOID TYPE
     Dosage: 12.5 MG, DAILY
     Route: 048
     Dates: start: 20110609, end: 20110609
  2. CLOZARIL [Suspect]
     Active Substance: CLOZAPINE
     Dosage: 75 MG, DAILY
     Route: 048
     Dates: start: 20110617, end: 20110619
  3. CLOZARIL [Suspect]
     Active Substance: CLOZAPINE
     Dosage: 150 MG, DAILY
     Route: 048
     Dates: start: 20110627, end: 20110630
  4. CLOZARIL [Suspect]
     Active Substance: CLOZAPINE
     Dosage: 150 MG, DAILY
     Route: 048
     Dates: start: 20110725, end: 20110907
  5. CLOZARIL [Suspect]
     Active Substance: CLOZAPINE
     Dosage: 100 MG, DAILY
     Route: 048
     Dates: start: 20120127, end: 20120130
  6. CLOZARIL [Suspect]
     Active Substance: CLOZAPINE
     Dosage: 125 MG, DAILY
     Route: 048
     Dates: start: 20120330, end: 20120409
  7. GANATON [Concomitant]
     Active Substance: ITOPRIDE
     Dosage: 100 MG
     Route: 048
  8. GANATON [Concomitant]
     Active Substance: ITOPRIDE
     Dosage: 150 MG
     Route: 048
  9. GASMOTIN [Concomitant]
     Active Substance: MOSAPRIDE CITRATE
     Dosage: 10 MG
     Route: 048
  10. SENIRAN [Concomitant]
     Active Substance: BROMAZEPAM
     Dosage: 4 MG
     Route: 048
  11. BIOFERMIN [Concomitant]
     Active Substance: BACILLUS SUBTILIS\LACTOBACILLUS ACIDOPHILUS\STREPTOCOCCUS FAECAIS
     Dosage: 3000 MG
     Route: 048
     Dates: start: 20111020
  12. BIOFERMIN [Concomitant]
     Active Substance: BACILLUS SUBTILIS\LACTOBACILLUS ACIDOPHILUS\STREPTOCOCCUS FAECAIS
     Dosage: 2000 MG
     Route: 048
     Dates: start: 20120119
  13. BIOFERMIN [Concomitant]
     Active Substance: BACILLUS SUBTILIS\LACTOBACILLUS ACIDOPHILUS\STREPTOCOCCUS FAECAIS
     Dosage: 3000 MG
     Route: 048
  14. CLOZARIL [Suspect]
     Active Substance: CLOZAPINE
     Dosage: 100 MG, DAILY
     Route: 048
     Dates: start: 20120206, end: 20120216
  15. CLOZARIL [Suspect]
     Active Substance: CLOZAPINE
     Dosage: 137.5 MG, DAILY
     Route: 048
     Dates: start: 20120410, end: 20120424
  16. GANATON [Concomitant]
     Active Substance: ITOPRIDE
     Dosage: 130 MG
     Route: 048
  17. MAGMITT [Concomitant]
     Active Substance: MAGNESIUM OXIDE
     Dosage: 660 MG
     Route: 048
  18. CLOZARIL [Suspect]
     Active Substance: CLOZAPINE
     Dosage: 50 MG, DAILY
     Route: 048
     Dates: start: 20110613, end: 20110616
  19. CLOZARIL [Suspect]
     Active Substance: CLOZAPINE
     Dosage: 125 MG, DAILY
     Route: 048
     Dates: start: 20110624, end: 20110626
  20. CLOZARIL [Suspect]
     Active Substance: CLOZAPINE
     Dosage: 175 MG, DAILY
     Route: 048
     Dates: start: 20120427, end: 20120507
  21. MAGMITT [Concomitant]
     Active Substance: MAGNESIUM OXIDE
     Dosage: 1980 MG, UNK
     Route: 048
  22. CLOZARIL [Suspect]
     Active Substance: CLOZAPINE
     Dosage: 25 MG, DAILY
     Route: 048
     Dates: start: 20110610, end: 20110612
  23. CLOZARIL [Suspect]
     Active Substance: CLOZAPINE
     Dosage: 100 MG, DAILY
     Route: 048
     Dates: start: 20110620, end: 20110623
  24. CLOZARIL [Suspect]
     Active Substance: CLOZAPINE
     Dosage: 125 MG, DAILY
     Route: 048
     Dates: start: 20110715, end: 20110724
  25. CLOZARIL [Suspect]
     Active Substance: CLOZAPINE
     Dosage: 50 MG, DAILY
     Route: 048
     Dates: start: 20120112, end: 20120112
  26. CLOZARIL [Suspect]
     Active Substance: CLOZAPINE
     Dosage: 112.5 MG, DAILY
     Route: 048
     Dates: start: 20120217, end: 20120329
  27. CLOZARIL [Suspect]
     Active Substance: CLOZAPINE
     Dosage: 150 MG, DAILY
     Route: 048
     Dates: start: 20120425, end: 20120426
  28. GANATON [Concomitant]
     Active Substance: ITOPRIDE
     Dosage: 100 MG
     Route: 048
     Dates: start: 20110506
  29. MAGMITT [Concomitant]
     Active Substance: MAGNESIUM OXIDE
     Dosage: 990 MG
     Route: 048
  30. GASMOTIN [Concomitant]
     Active Substance: MOSAPRIDE CITRATE
     Dosage: 15 MG
     Route: 048
  31. CLOZARIL [Suspect]
     Active Substance: CLOZAPINE
     Dosage: 75 MG, DAILY
     Route: 048
     Dates: start: 20111027, end: 20120111
  32. CLOZARIL [Suspect]
     Active Substance: CLOZAPINE
     Dosage: 225 MG, DAILY
     Route: 048
     Dates: start: 20120522, end: 20120607
  33. CLOZARIL [Suspect]
     Active Substance: CLOZAPINE
     Dosage: 250 MG, DAILY
     Route: 048
     Dates: start: 20120608
  34. ALLEGRA [Concomitant]
     Active Substance: FEXOFENADINE HYDROCHLORIDE
     Dosage: 120 MG
     Route: 048
     Dates: start: 20110506, end: 20110630
  35. MAGMITT [Concomitant]
     Active Substance: MAGNESIUM OXIDE
     Dosage: 660 MG
     Route: 048
     Dates: start: 20110506
  36. GASMOTIN [Concomitant]
     Active Substance: MOSAPRIDE CITRATE
     Dosage: 15 MG
     Route: 048
  37. SENIRAN [Concomitant]
     Active Substance: BROMAZEPAM
     Indication: SCHIZOPHRENIA, PARANOID TYPE
     Dosage: 2 MG
     Route: 048
     Dates: start: 20110506
  38. SENIRAN [Concomitant]
     Active Substance: BROMAZEPAM
     Dosage: 2 MG
     Route: 048
  39. GASMOTIN [Concomitant]
     Active Substance: MOSAPRIDE CITRATE
     Dosage: 10 MG
     Route: 048
     Dates: start: 20110506, end: 20120607
  40. SENIRAN [Concomitant]
     Active Substance: BROMAZEPAM
     Dosage: 4 MG
     Route: 048
  41. CLOZARIL [Suspect]
     Active Substance: CLOZAPINE
     Dosage: 100 MG, DAILY
     Route: 048
     Dates: start: 20110701, end: 20110714
  42. CLOZARIL [Suspect]
     Active Substance: CLOZAPINE
     Dosage: 100 MG, DAILY
     Route: 048
     Dates: start: 20110908, end: 20111026
  43. GANATON [Concomitant]
     Active Substance: ITOPRIDE
     Dosage: 100 MG
     Route: 048
  44. GASMOTIN [Concomitant]
     Active Substance: MOSAPRIDE CITRATE
     Dosage: 10 MG
     Route: 048
  45. RIVOTRIL [Concomitant]
     Active Substance: CLONAZEPAM
     Indication: SCHIZOPHRENIA, PARANOID TYPE
     Dosage: 0.5 MG
     Route: 048
     Dates: start: 20110506, end: 20110711
  46. SENIRAN [Concomitant]
     Active Substance: BROMAZEPAM
     Dosage: 6 MG
     Route: 048
  47. CLOZARIL [Suspect]
     Active Substance: CLOZAPINE
     Dosage: 75 MG, DAILY
     Route: 048
     Dates: start: 20120113, end: 20120126
  48. CLOZARIL [Suspect]
     Active Substance: CLOZAPINE
     Dosage: 125 MG, DAILY
     Route: 048
     Dates: start: 20120131, end: 20120205
  49. CLOZARIL [Suspect]
     Active Substance: CLOZAPINE
     Dosage: 200 MG, DAILY
     Route: 048
     Dates: start: 20120508, end: 20120521
  50. NEOALLERMIN [Concomitant]
     Dosage: 12 MG
     Route: 048
     Dates: start: 20110506, end: 20110630
  51. SENIRAN [Concomitant]
     Active Substance: BROMAZEPAM
     Dosage: 6 MG
     Route: 048

REACTIONS (12)
  - Blood pressure diastolic decreased [Unknown]
  - Aspartate aminotransferase increased [Recovered/Resolved]
  - Heart rate increased [Unknown]
  - Lymphocyte count decreased [Unknown]
  - Depression [Not Recovered/Not Resolved]
  - Blood pressure systolic decreased [Unknown]
  - Overdose [Unknown]
  - Eosinophil count decreased [Unknown]
  - Suicide attempt [Recovered/Resolved]
  - Blood lactate dehydrogenase increased [Unknown]
  - Alanine aminotransferase increased [Recovered/Resolved]
  - Neutrophil count decreased [Unknown]

NARRATIVE: CASE EVENT DATE: 20110629
